FAERS Safety Report 7183223-0 (Version None)
Quarter: 2010Q4

REPORT INFORMATION
  Report Type: 
  Country: None (occurrence: None)
  Receive Date: 20101222
  Receipt Date: 20100302
  Transmission Date: 20110411
  Serious: No
  Sender: FDA-Public Use
  Company Number: A0843001A

PATIENT
  Age: 88 Year
  Sex: Male
  Weight: 56.8 kg

DRUGS (6)
  1. FLOVENT [Suspect]
     Indication: ASTHMA
     Route: 065
  2. ADVAIR [Suspect]
     Indication: ASTHMA
     Route: 055
     Dates: start: 20100128, end: 20100130
  3. NITROGLYCERIN [Concomitant]
     Dosage: .4U AS REQUIRED
     Route: 048
  4. TRAMADOL [Concomitant]
  5. ATROVENT [Concomitant]
     Route: 048
  6. FUROSEMIDE [Concomitant]
     Dosage: 40MG IN THE MORNING
     Route: 048

REACTIONS (3)
  - CHEST DISCOMFORT [None]
  - THROAT TIGHTNESS [None]
  - WHEEZING [None]
